FAERS Safety Report 7647886-5 (Version None)
Quarter: 2011Q3

REPORT INFORMATION
  Report Type: 
  Country: None (occurrence: None)
  Receive Date: 20110801
  Receipt Date: 20110727
  Transmission Date: 20111222
  Serious: Yes (Hospitalization)
  Sender: FDA-Public Use
  Company Number: FR-SANOFI-AVENTIS-2011SA048093

PATIENT
  Age: 86 Year
  Sex: Male

DRUGS (7)
  1. KAYEXALATE [Concomitant]
  2. PREVISCAN [Concomitant]
  3. INDAPAMIDE [Suspect]
     Indication: HYPERKALAEMIA
     Route: 048
     Dates: start: 20110215
  4. VERAPAMIL [Concomitant]
  5. ESOMEPRAZOLE MAGNESIUM [Concomitant]
  6. CACIT D3 [Concomitant]
  7. ACETAMINOPHEN [Concomitant]

REACTIONS (2)
  - GOUT [None]
  - DIARRHOEA [None]
